FAERS Safety Report 6282963-5 (Version None)
Quarter: 2009Q3

REPORT INFORMATION
  Report Type: 
  Country: None (occurrence: None)
  Receive Date: 20090722
  Receipt Date: 20090722
  Transmission Date: 20100115
  Serious: Yes (Death)
  Sender: FDA-Public Use
  Company Number: None

PATIENT
  Age: 10 Year
  Sex: Male
  Weight: 21 kg

DRUGS (6)
  1. NIFURTIMOX 120MG TABS [Suspect]
     Indication: NEUROBLASTOMA RECURRENT
     Dosage: 30MG/KG/DAY PO DIV TID
     Route: 048
     Dates: start: 20090508, end: 20090626
  2. TRILISATE PRN [Concomitant]
  3. TRILEPTAL BID [Concomitant]
  4. BACTRIM [Concomitant]
  5. PROTONIX [Concomitant]
  6. DILAUDID [Concomitant]

REACTIONS (8)
  - COMPUTERISED TOMOGRAM ABNORMAL [None]
  - CONVULSION [None]
  - DRUG INTOLERANCE [None]
  - GASTROINTESTINAL PAIN [None]
  - LIVER DISORDER [None]
  - LYMPHADENOPATHY [None]
  - METASTASES TO LIVER [None]
  - VOMITING [None]
